FAERS Safety Report 18500440 (Version 1)
Quarter: 2020Q4

REPORT INFORMATION
  Report Type: Spontaneous
  Country: US (occurrence: US)
  Receive Date: 20201113
  Receipt Date: 20201113
  Transmission Date: 20210114
  Serious: Yes (Hospitalization)
  Sender: FDA-Public Use
  Company Number: US-EMCURE PHARMACEUTICALS LTD-2020-EPL-001853

PATIENT
  Age: 50 Year
  Sex: Female

DRUGS (2)
  1. CEPHALEXIN. [Concomitant]
     Active Substance: CEPHALEXIN
     Indication: PROPHYLAXIS
     Route: 048
  2. SULFAMETHOXAZOLE, TRIMETHOPRIM [Suspect]
     Active Substance: SULFAMETHOXAZOLE\TRIMETHOPRIM
     Indication: PROPHYLAXIS
     Route: 048

REACTIONS (2)
  - Off label use [Unknown]
  - Drug resistance [Unknown]
